FAERS Safety Report 7902993 (Version 10)
Quarter: 2013Q1

REPORT INFORMATION
  Report Type: Spontaneous
  Country: US (occurrence: US)
  Receive Date: 20110418
  Receipt Date: 20130325
  Transmission Date: 20140127
  Serious: Yes (Hospitalization)
  Sender: FDA-Public Use
  Company Number: US-ASTRAZENECA-2011SE20336

PATIENT
  Age: 66 Year
  Sex: Female

DRUGS (3)
  1. RHINOCORT AQUA [Suspect]
     Route: 045
  2. NEXIUM [Suspect]
     Route: 048
  3. SEROQUEL XR [Suspect]
     Route: 048

REACTIONS (10)
  - Abnormal behaviour [Unknown]
  - Breathing-related sleep disorder [Unknown]
  - Sinusitis [Unknown]
  - Nasal congestion [Unknown]
  - Dyspnoea [Unknown]
  - Insomnia [Unknown]
  - Ulcer [Unknown]
  - Asphyxia [Unknown]
  - Intentional drug misuse [Unknown]
  - Drug dose omission [Unknown]
